FAERS Safety Report 5746917-7 (Version None)
Quarter: 2008Q2

REPORT INFORMATION
  Report Type: 
  Country: None (occurrence: None)
  Receive Date: 20080520
  Receipt Date: 20080520
  Transmission Date: 20081010
  Serious: Yes (Hospitalization)
  Sender: FDA-Public Use
  Company Number: None

PATIENT
  Age: 68 Year
  Sex: Male
  Weight: 68.0396 kg

DRUGS (2)
  1. DIGITEK  125 MCG [Suspect]
     Indication: CARDIAC DISORDER
     Dosage: 250 MCG DAILY
     Dates: start: 20080417, end: 20080517
  2. METOPROLOL  50 MG TAKING [Suspect]
     Dosage: 150 MG

REACTIONS (12)
  - FATIGUE [None]
  - GALLBLADDER DISORDER [None]
  - GASTRIC DISORDER [None]
  - GASTROINTESTINAL DISORDER [None]
  - HALO VISION [None]
  - NAUSEA [None]
  - ORAL INTAKE REDUCED [None]
  - PHARMACEUTICAL PRODUCT COMPLAINT [None]
  - SMALL INTESTINAL OBSTRUCTION [None]
  - VISUAL FIELD DEFECT [None]
  - VITREOUS FLOATERS [None]
  - VOMITING [None]
